FAERS Safety Report 14449975 (Version 8)
Quarter: 2018Q2

REPORT INFORMATION
  Report Type: Spontaneous
  Country: PL (occurrence: PL)
  Receive Date: 20180128
  Receipt Date: 20180614
  Transmission Date: 20180711
  Serious: Yes (Death, Hospitalization)
  Sender: FDA-Public Use
  Company Number: PL-ROCHE-2061466

PATIENT
  Age: 57 Year
  Sex: Female

DRUGS (4)
  1. MYCOPHENOLATE MOFETIL. [Suspect]
     Active Substance: MYCOPHENOLATE MOFETIL
     Indication: IMMUNOSUPPRESSANT DRUG THERAPY
     Route: 065
  2. ENVARSUS XR [Suspect]
     Active Substance: TACROLIMUS
     Indication: IMMUNOSUPPRESSANT DRUG THERAPY
     Route: 065
  3. MYCOPHENOLATE MOFETIL. [Suspect]
     Active Substance: MYCOPHENOLATE MOFETIL
     Indication: RENAL TRANSPLANT
  4. ENVARSUS XR [Suspect]
     Active Substance: TACROLIMUS
     Indication: RENAL TRANSPLANT

REACTIONS (14)
  - Cardiac failure chronic [Unknown]
  - Dyspnoea exertional [Fatal]
  - Dyspnoea [Fatal]
  - Endocarditis [Fatal]
  - Haemolytic anaemia [Unknown]
  - Graft loss [Unknown]
  - Aneurysm [Unknown]
  - Haemolysis [Fatal]
  - Stenosis [Fatal]
  - Cardiac valve disease [Fatal]
  - Haemodynamic instability [Fatal]
  - Pyrexia [Fatal]
  - Device leakage [Unknown]
  - Tachycardia [Fatal]
